FAERS Safety Report 8586650 (Version 7)
Quarter: 2014Q2

REPORT INFORMATION
  Report Type: Spontaneous
  Country: US (occurrence: US)
  Receive Date: 20120530
  Receipt Date: 20140519
  Transmission Date: 20141212
  Serious: Yes (Hospitalization, Disabling, Other)
  Sender: FDA-Public Use
  Company Number: US-009507513-1205USA04489

PATIENT
  Sex: Female
  Weight: 77.98 kg

DRUGS (7)
  1. FOSAMAX [Suspect]
     Indication: OSTEOPOROSIS
     Dosage: 10 MG, UNK
     Route: 048
     Dates: start: 19990802, end: 20020328
  2. FOSAMAX [Suspect]
     Dosage: UNK MG, QW
     Dates: end: 200612
  3. FOSAMAX [Suspect]
     Dosage: 70 MG, QD
     Route: 048
     Dates: start: 20030307
  4. FUROSEMIDE [Concomitant]
     Dosage: UNK
     Dates: start: 19970324, end: 20071002
  5. DEMADEX [Concomitant]
     Dosage: UNK
     Dates: start: 19971105
  6. CARDURA [Concomitant]
  7. NITRO [Concomitant]
     Indication: CHEST PAIN
     Dosage: UNK
     Dates: start: 19970908, end: 201110

REACTIONS (81)
  - Femur fracture [Recovering/Resolving]
  - Osteoporosis [Unknown]
  - Renal failure chronic [Not Recovered/Not Resolved]
  - Stress fracture [Unknown]
  - Bone density decreased [Unknown]
  - Femur fracture [Unknown]
  - Femoral neck fracture [Unknown]
  - Pulmonary arterial hypertension [Unknown]
  - Fall [Unknown]
  - Fracture nonunion [Unknown]
  - Syncope [Unknown]
  - Carotid artery stenosis [Unknown]
  - Humerus fracture [Unknown]
  - Chronic obstructive pulmonary disease [Unknown]
  - Cellulitis [Unknown]
  - Carotid endarterectomy [Unknown]
  - Rib fracture [Unknown]
  - Spinal compression fracture [Unknown]
  - Pubis fracture [Unknown]
  - Chest pain [Unknown]
  - Myocardial infarction [Unknown]
  - Dyspnoea [Unknown]
  - Myocardial infarction [Unknown]
  - Refusal of treatment by patient [Unknown]
  - Carotid artery disease [Unknown]
  - Humerus fracture [Unknown]
  - Dermatitis [Unknown]
  - Renal failure [Unknown]
  - Coronary arterial stent insertion [Unknown]
  - Carotid endarterectomy [Unknown]
  - Spinal osteoarthritis [Unknown]
  - Sciatica [Not Recovered/Not Resolved]
  - Chronic obstructive pulmonary disease [Unknown]
  - Sciatica [Unknown]
  - Back pain [Unknown]
  - Erythema [Unknown]
  - Oedema peripheral [Unknown]
  - Dementia [Unknown]
  - Anxiety [Unknown]
  - Stress [Unknown]
  - Fracture nonunion [Unknown]
  - Clostridium difficile colitis [Recovered/Resolved]
  - Asthma [Unknown]
  - Angiopathy [Unknown]
  - Chest pain [Unknown]
  - Fall [Unknown]
  - Pneumonia [Unknown]
  - Motor dysfunction [Unknown]
  - Spinal pain [Not Recovered/Not Resolved]
  - Cardiomegaly [Unknown]
  - Rib fracture [Unknown]
  - Urinary retention [Unknown]
  - Chronic obstructive pulmonary disease [Not Recovered/Not Resolved]
  - Gout [Unknown]
  - Kyphosis [Unknown]
  - Scoliosis [Unknown]
  - Varicose vein [Unknown]
  - Appendicectomy [Unknown]
  - Fatigue [Recovered/Resolved]
  - Fall [Unknown]
  - Prescribed overdose [Unknown]
  - Fall [Unknown]
  - Aortic calcification [Unknown]
  - Denture wearer [Unknown]
  - Atrioventricular block first degree [Unknown]
  - Heart valve incompetence [Unknown]
  - Diastolic dysfunction [Unknown]
  - Pulmonary hypertension [Unknown]
  - Iron deficiency anaemia [Unknown]
  - Protein deficiency [Unknown]
  - Ingrowing nail [Unknown]
  - Malnutrition [Unknown]
  - Atelectasis [Unknown]
  - Exostosis [Unknown]
  - Renal impairment [Unknown]
  - Left ventricular hypertrophy [Unknown]
  - Candida infection [Unknown]
  - Oedema peripheral [Unknown]
  - Pain in extremity [Unknown]
  - Malaise [Recovered/Resolved]
  - Arthralgia [Unknown]
